FAERS Safety Report 21402647 (Version 1)
Quarter: 2022Q4

REPORT INFORMATION
  Report Type: Report from Study
  Country: US (occurrence: US)
  Receive Date: 20221003
  Receipt Date: 20221003
  Transmission Date: 20230113
  Serious: Yes (Other)
  Sender: FDA-Public Use
  Company Number: US-BRISTOL-MYERS SQUIBB COMPANY-2022-113482

PATIENT
  Age: 65 Year
  Sex: Male
  Weight: 136.08 kg

DRUGS (3)
  1. POMALYST [Suspect]
     Active Substance: POMALIDOMIDE
     Indication: Plasma cell myeloma
     Route: 065
  2. THALIDOMIDE [Suspect]
     Active Substance: THALIDOMIDE
     Indication: Plasma cell myeloma
     Dosage: NIGHTLY
     Route: 048
     Dates: start: 20220524
  3. ZARXIO [Concomitant]
     Active Substance: FILGRASTIM-SNDZ

REACTIONS (5)
  - Drug intolerance [Unknown]
  - Weight decreased [Unknown]
  - Chills [Unknown]
  - Hyperhidrosis [Unknown]
  - Fatigue [Unknown]
